FAERS Safety Report 5625858-X (Version None)
Quarter: 2008Q1

REPORT INFORMATION
  Report Type: 
  Country: None (occurrence: None)
  Receive Date: 20080212
  Receipt Date: 20080212
  Transmission Date: 20080703
  Serious: Yes (Life-Threatening)
  Sender: FDA-Public Use
  Company Number: None

PATIENT
  Age: 67 Year
  Sex: Female
  Weight: 83 kg

DRUGS (2)
  1. HEPARIN SODIUM INJECTION [Suspect]
     Indication: CORONARY ARTERY BYPASS
     Dosage: 35,000 UNITS ONCE IV  ONE DOSE
     Route: 042
     Dates: start: 20080206, end: 20080206
  2. HEPARIN SODIUM INJECTION [Suspect]
     Indication: CORONARY ARTERY BYPASS
     Dosage: 25,000 UNITS ONCE IV  ONE DOSE
     Route: 042
     Dates: start: 20080206, end: 20080206

REACTIONS (2)
  - ERYTHEMA [None]
  - PROCEDURAL HYPOTENSION [None]
